FAERS Safety Report 4869222-X (Version None)
Quarter: 2005Q4

REPORT INFORMATION
  Report Type: 
  Country: None (occurrence: None)
  Receive Date: 20051230
  Receipt Date: 20051221
  Transmission Date: 20060501
  Serious: Yes (Hospitalization, Other)
  Sender: FDA-Public Use
  Company Number: US-JNJFOC-20051101869

PATIENT
  Sex: Female
  Weight: 67.59 kg

DRUGS (9)
  1. REMICADE [Suspect]
     Indication: ANKYLOSING SPONDYLITIS
     Route: 042
  2. PLAQUENIL [Concomitant]
     Route: 048
  3. PREDNISONE TAB [Concomitant]
     Route: 048
  4. VITAMIN D [Concomitant]
  5. SULFASALAZINE [Concomitant]
  6. NEXIUM [Concomitant]
     Route: 048
  7. ELAVIL [Concomitant]
     Dosage: 25 MG AT BEDTIME
     Route: 048
  8. ASPIRIN [Concomitant]
     Route: 048
  9. CALCIUM GLUCONATE [Concomitant]
     Route: 048

REACTIONS (7)
  - ANTINUCLEAR ANTIBODY POSITIVE [None]
  - ARTHRITIS [None]
  - ATELECTASIS [None]
  - DOUBLE STRANDED DNA ANTIBODY [None]
  - LUPUS-LIKE SYNDROME [None]
  - PERICARDIAL EFFUSION [None]
  - PLEURAL EFFUSION [None]
